FAERS Safety Report 16769436 (Version 2)
Quarter: 2019Q4

REPORT INFORMATION
  Report Type: Report from Study
  Country: FR (occurrence: FR)
  Receive Date: 20190903
  Receipt Date: 20191125
  Transmission Date: 20200122
  Serious: Yes (Death, Hospitalization, Other)
  Sender: FDA-Public Use
  Company Number: FR-JAZZ-2019-FR-012285

PATIENT

DRUGS (17)
  1. FUROSEMIDE. [Concomitant]
     Active Substance: FUROSEMIDE
     Indication: DIURETIC THERAPY
  2. DEFITELIO [Suspect]
     Active Substance: DEFIBROTIDE SODIUM
     Dosage: 19.87 MG/KG, QD
     Route: 042
     Dates: start: 20190714
  3. FUROSEMIDE. [Concomitant]
     Active Substance: FUROSEMIDE
     Indication: VENOOCCLUSIVE DISEASE
     Dosage: UNK
     Dates: start: 20190624
  4. CHOLURSO [Concomitant]
     Active Substance: URSODIOL
     Indication: PROPHYLAXIS
     Dosage: UNK
     Dates: start: 20190527
  5. ALBUMIN [Concomitant]
     Active Substance: ALBUMIN HUMAN
     Indication: VENOOCCLUSIVE DISEASE
  6. DEFITELIO [Suspect]
     Active Substance: DEFIBROTIDE SODIUM
     Indication: VENOOCCLUSIVE DISEASE
     Dosage: 23.07 MG/KG, QD
     Route: 042
     Dates: start: 20190623, end: 2019
  7. PANTOPRAZOLE [Concomitant]
     Active Substance: PANTOPRAZOLE
     Indication: PROPHYLAXIS
     Dosage: UNK
     Dates: start: 20190609
  8. TRIFLUCAN [Concomitant]
     Active Substance: FLUCONAZOLE
     Indication: ANTIFUNGAL TREATMENT
     Dosage: UNK
     Dates: start: 20190717
  9. TAZOCILLINE [Concomitant]
     Active Substance: PIPERACILLIN SODIUM\TAZOBACTAM SODIUM
     Indication: ANTIBIOTIC THERAPY
     Dosage: UNK
     Dates: start: 20190706, end: 20190720
  10. MYCAMINE [Concomitant]
     Active Substance: MICAFUNGIN SODIUM
     Indication: ANTIFUNGAL TREATMENT
     Dosage: UNK
     Dates: start: 20190707, end: 20190708
  11. OXYCODONE [Concomitant]
     Active Substance: OXYCODONE
     Indication: PRODUCT USED FOR UNKNOWN INDICATION
     Dosage: UNK
     Dates: start: 20190821
  12. MEROPENEM. [Concomitant]
     Active Substance: MEROPENEM
     Indication: ANTIBIOTIC THERAPY
     Dosage: UNK
     Dates: start: 20190624
  13. CICLOSPORIN [Concomitant]
     Active Substance: CYCLOSPORINE
     Indication: PROPHYLAXIS AGAINST GRAFT VERSUS HOST DISEASE
     Dosage: UNK
     Dates: start: 20190609
  14. TRANXENE [Concomitant]
     Active Substance: CLORAZEPATE DIPOTASSIUM
     Indication: ANXIOLYTIC THERAPY
     Dosage: UNK
     Dates: start: 20190723
  15. MIDAZOLAM [Concomitant]
     Active Substance: MIDAZOLAM HYDROCHLORIDE
     Indication: PRODUCT USED FOR UNKNOWN INDICATION
     Dosage: UNK
     Dates: start: 20190821
  16. DEFITELIO [Suspect]
     Active Substance: DEFIBROTIDE SODIUM
     Dosage: 24.69 MG/KG, QD
     Route: 042
     Dates: start: 20190712, end: 20190714
  17. ACICLOVIR [Concomitant]
     Active Substance: ACYCLOVIR
     Indication: ANTIVIRAL TREATMENT
     Dosage: UNK
     Dates: start: 20190608

REACTIONS (15)
  - Cardiac disorder [Recovering/Resolving]
  - BK virus infection [Fatal]
  - Haemodynamic instability [Fatal]
  - Haematuria [Fatal]
  - Nervous system disorder [Recovering/Resolving]
  - Respiratory failure [Fatal]
  - Ascites [Not Recovered/Not Resolved]
  - Underdose [Unknown]
  - Pyrexia [Not Recovered/Not Resolved]
  - Gastric ulcer [Fatal]
  - Coagulopathy [Unknown]
  - Confusional state [Not Recovered/Not Resolved]
  - Oxygen saturation decreased [Recovering/Resolving]
  - Abdominal pain [Not Recovered/Not Resolved]
  - Renal failure [Recovering/Resolving]

NARRATIVE: CASE EVENT DATE: 20190623
